FAERS Safety Report 7036237-5 (Version None)
Quarter: 2010Q4

REPORT INFORMATION
  Report Type: 
  Country: None (occurrence: None)
  Receive Date: 20101008
  Receipt Date: 20100930
  Transmission Date: 20110411
  Serious: Yes (Other)
  Sender: FDA-Public Use
  Company Number: US-ABBOTT-10P-163-0674959-00

PATIENT
  Sex: Female
  Weight: 54.48 kg

DRUGS (4)
  1. HUMIRA [Suspect]
     Indication: PSORIATIC ARTHROPATHY
     Dates: start: 20090901, end: 20100801
  2. LEFLUNOMIDE [Concomitant]
     Indication: PSORIATIC ARTHROPATHY
     Dates: end: 20100801
  3. METHOTREXATE [Concomitant]
     Indication: PSORIATIC ARTHROPATHY
     Dates: end: 20100801
  4. FOLIC ACID [Concomitant]
     Indication: PSORIATIC ARTHROPATHY
     Dates: end: 20100801

REACTIONS (6)
  - FUNGAL INFECTION [None]
  - HAEMOPHILUS INFECTION [None]
  - HYPOPHAGIA [None]
  - NAUSEA [None]
  - NECK MASS [None]
  - WEIGHT DECREASED [None]
